FAERS Safety Report 5040573-1 (Version None)
Quarter: 2006Q2

REPORT INFORMATION
  Report Type: 
  Country: None (occurrence: None)
  Receive Date: 20060630
  Receipt Date: 20060623
  Transmission Date: 20061013
  Serious: Yes (Hospitalization)
  Sender: FDA-Public Use
  Company Number: GB-ROCHE-453387

PATIENT
  Age: 43 Year
  Sex: Female

DRUGS (1)
  1. NAPROSYN [Suspect]
     Indication: ANKYLOSING SPONDYLITIS
     Route: 048
     Dates: start: 19980615, end: 20060616

REACTIONS (1)
  - EPISTAXIS [None]
